FAERS Safety Report 8379754-8 (Version None)
Quarter: 2012Q2

REPORT INFORMATION
  Report Type: 
  Country: None (occurrence: None)
  Receive Date: 20120523
  Receipt Date: 20120512
  Transmission Date: 20120825
  Serious: Yes (Hospitalization, Other)
  Sender: FDA-Public Use
  Company Number: US-BRISTOL-MYERS SQUIBB COMPANY-16589616

PATIENT
  Age: 54 Year
  Sex: Male
  Weight: 102 kg

DRUGS (3)
  1. ASPIRIN [Suspect]
  2. IPILIMUMAB [Suspect]
     Indication: MALIGNANT MELANOMA
     Dosage: LAST DOSE WAS ON 09MAR2012
     Route: 042
     Dates: start: 20120106, end: 20120309
  3. DEXAMETHASONE [Suspect]

REACTIONS (5)
  - UPPER GASTROINTESTINAL HAEMORRHAGE [None]
  - CELLULITIS [None]
  - HYPERTENSION [None]
  - HYPERGLYCAEMIA [None]
  - HYPOALBUMINAEMIA [None]
